FAERS Safety Report 6719920-8 (Version None)
Quarter: 2010Q2

REPORT INFORMATION
  Report Type: 
  Country: None (occurrence: None)
  Receive Date: 20100511
  Receipt Date: 20100507
  Transmission Date: 20101027
  Serious: Yes (Death, Hospitalization)
  Sender: FDA-Public Use
  Company Number: FR-WYE-G03045809

PATIENT
  Age: 84 Year
  Sex: Female

DRUGS (13)
  1. EFFEXOR [Suspect]
     Dosage: UNKNOWN FROM AN UNSPEC. DATE, THEN DOSE REDUCED (UNKNOWN) FROM MAY-2008
     Route: 048
  2. SERESTA [Suspect]
     Dosage: UNKNOWN
     Route: 048
     Dates: end: 20080501
  3. LEXOMIL [Suspect]
     Dosage: UNKNOWN FROM AN UNSPEC. DATE, THEN DOSE REDUCED (UNKNOWN) FROM MAY-2008
     Route: 048
  4. OFLOCET [Suspect]
     Dosage: UNKNOWN FROM AN UNSPEC. DATE, THEN DOSE REDUCED (UNKNOWN) FROM MAY-2008
  5. COAPROVEL [Concomitant]
     Dosage: UNKNOWN
     Route: 048
  6. SPECIAFOLDINE [Concomitant]
     Dosage: UNKNOWN
     Route: 048
  7. HYPERIUM [Concomitant]
     Dosage: UNKNOWN
     Route: 048
  8. TAHOR [Concomitant]
     Dosage: UNKNOWN
     Route: 048
  9. LEVOTHYROXINE SODIUM [Concomitant]
     Dosage: UNKNOWN
     Route: 048
  10. PREVISCAN [Concomitant]
     Dosage: UNKNOWN
     Route: 048
  11. DIGOXIN [Concomitant]
     Dosage: UNKNOWN
     Route: 048
  12. CERIS [Suspect]
     Dosage: UNKNOWN
     Route: 048
     Dates: end: 20080501
  13. AMLOR [Concomitant]
     Dosage: UNKNOWN
     Route: 048

REACTIONS (2)
  - CONFUSIONAL STATE [None]
  - SEPTIC SHOCK [None]
